FAERS Safety Report 22940569 (Version 2)
Quarter: 2023Q4

REPORT INFORMATION
  Report Type: Spontaneous
  Country: US (occurrence: US)
  Receive Date: 20230913
  Receipt Date: 20231207
  Transmission Date: 20240110
  Serious: Yes (Other)
  Sender: FDA-Public Use
  Company Number: US-JNJFOC-20230913096

PATIENT
  Age: 3 Year
  Sex: Female

DRUGS (25)
  1. TYLENOL REGULAR STRENGTH [Suspect]
     Active Substance: ACETAMINOPHEN
     Indication: Product used for unknown indication
     Route: 064
     Dates: start: 201711, end: 201807
  2. TYLENOL EXTRA STRENGTH [Suspect]
     Active Substance: ACETAMINOPHEN
     Indication: Migraine
     Dosage: 10 PLUS TIMES PER WEEK, FIRST, SECOND AND THIRD TRIMESTER
     Route: 064
     Dates: start: 201711, end: 201807
  3. TYLENOL EXTRA STRENGTH [Suspect]
     Active Substance: ACETAMINOPHEN
     Indication: Polycystic ovarian syndrome
  4. TYLENOL EXTRA STRENGTH [Suspect]
     Active Substance: ACETAMINOPHEN
     Indication: Muscle spasms
  5. TYLENOL EXTRA STRENGTH [Suspect]
     Active Substance: ACETAMINOPHEN
     Indication: Migraine
     Dosage: 10 PLUS TIMES PER WEEK, SECOND AND THIRD TRIMESTER
     Route: 064
     Dates: start: 201804, end: 201807
  6. TYLENOL EXTRA STRENGTH [Suspect]
     Active Substance: ACETAMINOPHEN
     Indication: Polycystic ovarian syndrome
  7. TYLENOL EXTRA STRENGTH [Suspect]
     Active Substance: ACETAMINOPHEN
     Indication: Muscle spasms
  8. ACETAMINOPHEN [Suspect]
     Active Substance: ACETAMINOPHEN
     Indication: Migraine
     Dosage: 10 PLUS TIMES PER WEEK, FIRST, SECOND AND THIRD TRIMESTER
     Route: 064
     Dates: start: 201801, end: 201807
  9. ACETAMINOPHEN [Suspect]
     Active Substance: ACETAMINOPHEN
     Indication: Polycystic ovarian syndrome
  10. ACETAMINOPHEN [Suspect]
     Active Substance: ACETAMINOPHEN
     Indication: Muscle spasms
  11. WELLBUTRIN [Concomitant]
     Active Substance: BUPROPION HYDROCHLORIDE
     Indication: Perinatal depression
     Route: 064
  12. LEVOTHYROXINE [Concomitant]
     Active Substance: LEVOTHYROXINE
     Indication: Thyroid disorder
     Route: 064
     Dates: start: 201708, end: 201805
  13. ZOFRAN [Concomitant]
     Active Substance: ONDANSETRON HYDROCHLORIDE
     Indication: Nausea
     Route: 064
     Dates: start: 201708, end: 201805
  14. AMOXICILLIN [Concomitant]
     Active Substance: AMOXICILLIN
     Indication: Product used for unknown indication
     Dosage: AMOXICILLIN 400 MG/5 ML ORAL SUSPENSION, TAKE 7 AND 1/2 MLS BY MOUTH TVIK) TIMES A DAY FOR 10 DAYS
     Route: 065
  15. AMOXICILLIN\CLAVULANATE POTASSIUM [Concomitant]
     Active Substance: AMOXICILLIN\CLAVULANATE POTASSIUM
     Indication: Product used for unknown indication
     Dosage: AMOXICILLIN 600 MG-POTASSIUM CLAVULANATE 42.9 MG/5 ML ORAL SUSPENSION?TAKE 6 ML BY MOUTH TWICE DAILY
     Route: 048
  16. BUDESONIDE [Concomitant]
     Active Substance: BUDESONIDE
     Indication: Product used for unknown indication
     Dosage: BUDESONIDE 0.25 MG/2 ML SUSPENSION FOR NEBULIZATION?USE 1 VIAL IN THE NEBULIZER EVERY DAY AS DIRECTE
     Route: 065
  17. CEFDINIR [Concomitant]
     Active Substance: CEFDINIR
     Indication: Product used for unknown indication
     Dosage: CEFDINIR 250 MG/5 ML ORAL SUSPENSION?TAKE 2 MLS BY MOUTH TVIK) TIMES A DAY FOR 10 DAYS DISCARD REMAI
     Route: 048
  18. CETIRIZINE [Concomitant]
     Active Substance: CETIRIZINE HYDROCHLORIDE
     Indication: Product used for unknown indication
     Dosage: CETIRIZINE 5 MG/5 ML ORAL SOLUTION?TAKE 5 M L EVERY DAY BY ORAL ROUTE AT BEDTIME.
     Route: 048
  19. DEXAMETHASONE SODIUM PHOSPHATE [Concomitant]
     Active Substance: DEXAMETHASONE PHOSPHATE\DEXAMETHASONE SODIUM PHOSPHATE
     Indication: Product used for unknown indication
     Dosage: DEXAMETHASONE SODIUM PHOSPHATE 0.1% EYE DROPS?INSTILL 5 DROPS BID TO AFFECTED EAR FOR 10 DAYS
     Route: 065
  20. HYDROCORTISONE [Concomitant]
     Active Substance: HYDROCORTISONE
     Indication: Product used for unknown indication
     Dosage: HYDROCORTISONE 1 % TOPICAL CREAM?APPLY TOPICALLY 3 TIMES DAILY AS NEEDED FOR 7 DAYS.
     Route: 061
  21. METHYLPHENIDATE [Concomitant]
     Active Substance: METHYLPHENIDATE
     Indication: Product used for unknown indication
     Dosage: METHYLPHENIDATE 5 MG/5 ML ORAL SOLUTION?TAKE 5 M L EVERY DAY BY ORAL ROUTE IN THE MORNING.
     Route: 048
  22. MUPIROCIN [Concomitant]
     Active Substance: MUPIROCIN
     Indication: Product used for unknown indication
     Dosage: MUPIROCIN 2 % TOPICAL OINTMENT?APPLY 1 APPLICATION TWICE A DAY BY TOPICAL ROUTE AS DIRECTED FOR 10 D
     Route: 061
  23. OFLOXACIN [Concomitant]
     Active Substance: OFLOXACIN
     Indication: Product used for unknown indication
     Dosage: OFLOXACIN 0.3 % EAR DROPS?INSLLLL 5 DROPS INTO AFFECTED EAR(S) BY OTIC ROUTE 2 TIMES PER DAY X10DAYS
     Route: 065
  24. OFLOXACIN [Concomitant]
     Active Substance: OFLOXACIN
     Dosage: OFLOXACIN 0.3 % EYE DROPS?INSTILL 5 DROPS T\M::J TIMES A DAY INTO AFFECTED EAR(S) FOR 10 DAYS
     Route: 065
  25. PREDNISOLONE SODIUM PHOSPHATE [Concomitant]
     Active Substance: PREDNISOLONE SODIUM PHOSPHATE
     Indication: Product used for unknown indication
     Dosage: PREDNISOLONE SODIUM PHOSPHATE 15 MG/5 ML (3 MG/MLL ORAL SOLUTION?TAKE 10 MLS BY MOUTH ONE TIME A DAY
     Route: 048

REACTIONS (3)
  - Autism spectrum disorder [Unknown]
  - Foetal exposure during pregnancy [Unknown]
  - Attention deficit hyperactivity disorder [Unknown]

NARRATIVE: CASE EVENT DATE: 20210907
